FAERS Safety Report 5017840-0 (Version None)
Quarter: 2006Q2

REPORT INFORMATION
  Report Type: 
  Country: None (occurrence: None)
  Receive Date: 20060605
  Receipt Date: 20060523
  Transmission Date: 20061013
  Serious: Yes (Hospitalization)
  Sender: FDA-Public Use
  Company Number: PHEH2006US06825

PATIENT
  Age: 67 Year
  Sex: Female

DRUGS (2)
  1. TAXOL [Concomitant]
  2. ZOMETA [Suspect]
     Indication: METASTASES TO BONE
     Dosage: 4 MG MONTHLY
     Route: 042
     Dates: start: 20031212, end: 20060410

REACTIONS (5)
  - DENTAL EXAMINATION ABNORMAL [None]
  - OSTEONECROSIS [None]
  - PAIN IN JAW [None]
  - POOR PERSONAL HYGIENE [None]
  - TOOTH EXTRACTION [None]
